FAERS Safety Report 8602725 (Version 2)
Quarter: 2012Q4

REPORT INFORMATION
  Report Type: 
  Country: US (occurrence: US)
  Receive Date: 20120607
  Receipt Date: 20121204
  Transmission Date: 20130627
  Serious: Yes (Hospitalization, Disabling, Other)
  Sender: FDA-Public Use
  Company Number: US-BAYER-2012-056006

PATIENT
  Age: 41 Year
  Sex: Female
  Weight: 60.32 kg

DRUGS (6)
  1. YASMIN [Suspect]
     Indication: ENDOMETRIOSIS
     Dosage: UNK
     Dates: start: 20090711, end: 20090803
  2. OCELLA [Suspect]
     Indication: ENDOMETRIOSIS
     Dosage: UNK
     Dates: start: 20090711, end: 20090803
  3. YAZ [Suspect]
     Indication: ENDOMETRIOSIS
     Dosage: UNK
     Dates: start: 200907, end: 20090803
  4. NYSTATIN [Concomitant]
     Indication: ORAL THRUSH
  5. LEXAPRO [Concomitant]
     Indication: DEPRESSION
  6. XANAX [Concomitant]
     Indication: DEPRESSION

REACTIONS (13)
  - Cerebral infarction [None]
  - Cerebrovascular accident [None]
  - Thrombosis [None]
  - Injury [None]
  - Pain [None]
  - Pain [None]
  - Aphasia [None]
  - Hemiparesis [None]
  - Arthralgia [None]
  - Musculoskeletal stiffness [None]
  - Muscle atrophy [None]
  - Hemiplegia [None]
  - Off label use [None]
